FAERS Safety Report 5181002-7 (Version None)
Quarter: 2006Q4

REPORT INFORMATION
  Report Type: 
  Country: None (occurrence: None)
  Receive Date: 20061220
  Receipt Date: 20061211
  Transmission Date: 20070319
  Serious: Yes (Hospitalization, Other)
  Sender: FDA-Public Use
  Company Number: PHMT2006CA02291

PATIENT
  Sex: Male

DRUGS (2)
  1. TEGRETOL [Suspect]
     Dosage: 200MG 4 TIMES A DAY
     Route: 048
     Dates: start: 19790101
  2. INSULIN [Concomitant]

REACTIONS (3)
  - CEREBROVASCULAR ACCIDENT [None]
  - GRAND MAL CONVULSION [None]
  - OVERDOSE [None]
